FAERS Safety Report 4403064-4 (Version None)
Quarter: 2004Q3

REPORT INFORMATION
  Report Type: 
  Country: None (occurrence: None)
  Receive Date: 20040721
  Receipt Date: 20040211
  Transmission Date: 20050211
  Serious: No
  Sender: FDA-Public Use
  Company Number: US-GLAXOSMITHKLINE-A0498034A

PATIENT
  Sex: Female

DRUGS (1)
  1. IMITREX [Suspect]
     Indication: HEADACHE
     Dosage: 25MG AS REQUIRED
     Route: 048
     Dates: start: 20040131

REACTIONS (1)
  - ARTHRALGIA [None]
